FAERS Safety Report 4898349-1 (Version None)
Quarter: 2006Q1

REPORT INFORMATION
  Report Type: 
  Country: None (occurrence: None)
  Receive Date: 20060127
  Receipt Date: 20060118
  Transmission Date: 20060701
  Serious: Yes (Hospitalization)
  Sender: FDA-Public Use
  Company Number: 163-20785-05110109

PATIENT
  Age: 70 Year
  Sex: Female

DRUGS (9)
  1. THALOMID [Suspect]
     Indication: MYELODYSPLASTIC SYNDROME
     Dosage: 150 MG, DAILY, ORAL
     Route: 048
     Dates: start: 20040812, end: 20050101
  2. THALOMID [Suspect]
     Indication: MYELODYSPLASTIC SYNDROME
     Dosage: 150 MG, DAILY, ORAL
     Route: 048
     Dates: start: 20050725, end: 20050927
  3. THALOMID [Suspect]
     Indication: MYELODYSPLASTIC SYNDROME
     Dosage: 150 MG, DAILY, ORAL
     Route: 048
     Dates: start: 20050101, end: 20051201
  4. VASOTEC [Concomitant]
  5. BENADRYL (BENADRYL ALLERGY) [Concomitant]
  6. DESFERAL (DEFEROXAMINE MESILATE) [Concomitant]
  7. VITAMIN B6 [Concomitant]
  8. DIGOXIN [Concomitant]
  9. MULTIVITAMIN [Concomitant]

REACTIONS (4)
  - FALL [None]
  - OEDEMA [None]
  - PANCYTOPENIA [None]
  - SEPSIS [None]
